FAERS Safety Report 6498944-2 (Version None)
Quarter: 2009Q4

REPORT INFORMATION
  Report Type: 
  Country: None (occurrence: None)
  Receive Date: 20091215
  Receipt Date: 20091207
  Transmission Date: 20100525
  Serious: Yes (Other)
  Sender: FDA-Public Use
  Company Number: CN-ASTRAZENECA-2009SE30539

PATIENT
  Sex: Female

DRUGS (1)
  1. ZOLADEX [Suspect]
     Dosage: 4 INJECTION
     Route: 058

REACTIONS (2)
  - DRUG INEFFECTIVE [None]
  - POSTMENOPAUSAL HAEMORRHAGE [None]
